FAERS Safety Report 18192486 (Version 2)
Quarter: 2020Q4

REPORT INFORMATION
  Report Type: Spontaneous
  Country: US (occurrence: US)
  Receive Date: 20200825
  Receipt Date: 20201109
  Transmission Date: 20210113
  Serious: No
  Sender: FDA-Public Use
  Company Number: US-LEXICON PHARMACEUTICALS, INC-20-1606-00656

PATIENT
  Age: 51 Year
  Sex: Female

DRUGS (2)
  1. XERMELO [Suspect]
     Active Substance: TELOTRISTAT ETHYL
     Indication: CARCINOID SYNDROME
     Dates: start: 20200801
  2. XERMELO [Suspect]
     Active Substance: TELOTRISTAT ETHYL
     Dosage: SOMETIMES TAKES 250 MG QD

REACTIONS (4)
  - Abdominal discomfort [Unknown]
  - Treatment noncompliance [Recovered/Resolved]
  - Off label use [Not Recovered/Not Resolved]
  - Constipation [Not Recovered/Not Resolved]
